FAERS Safety Report 7225094-X (Version None)
Quarter: 2011Q1

REPORT INFORMATION
  Report Type: 
  Country: None (occurrence: None)
  Receive Date: 20110107
  Receipt Date: 20110107
  Transmission Date: 20110831
  Serious: No
  Sender: FDA-Public Use
  Company Number: None

PATIENT
  Sex: Male
  Weight: 25.4 kg

DRUGS (2)
  1. LANSOPRAZOLE [Suspect]
  2. PREVACID [Suspect]

REACTIONS (3)
  - DEVICE OCCLUSION [None]
  - PRODUCT SUBSTITUTION ISSUE [None]
  - PRODUCT SOLUBILITY ABNORMAL [None]
